APPROVED DRUG PRODUCT: CEFTRIAXONE
Active Ingredient: CEFTRIAXONE SODIUM
Strength: EQ 1GM BASE/VIAL
Dosage Form/Route: INJECTABLE;INJECTION
Application: A202563 | Product #001
Applicant: HOSPIRA INC
Approved: Aug 20, 2012 | RLD: No | RS: No | Type: DISCN